FAERS Safety Report 18021160 (Version 4)
Quarter: 2021Q3

REPORT INFORMATION
  Report Type: Report from Study
  Country: DE (occurrence: DE)
  Receive Date: 20200714
  Receipt Date: 20210924
  Transmission Date: 20211014
  Serious: No
  Sender: FDA-Public Use
  Company Number: DE-SHIRE-DE202020602

PATIENT
  Age: 77 Year
  Sex: Female

DRUGS (45)
  1. TEDUGLUTIDE [Suspect]
     Active Substance: TEDUGLUTIDE
     Dosage: 3.5 MILLILITER
     Route: 065
     Dates: start: 2019
  2. TEDUGLUTIDE [Suspect]
     Active Substance: TEDUGLUTIDE
     Dosage: 3.5 MILLILITER
     Route: 065
     Dates: start: 2020
  3. TEDUGLUTIDE [Suspect]
     Active Substance: TEDUGLUTIDE
     Dosage: 3.4 MILLILITER, QD
     Route: 065
     Dates: start: 201804
  4. TEDUGLUTIDE [Suspect]
     Active Substance: TEDUGLUTIDE
     Dosage: 3.4 MILLILITER, QD
     Route: 065
     Dates: start: 201804
  5. TEDUGLUTIDE [Suspect]
     Active Substance: TEDUGLUTIDE
     Dosage: 2.8 MILLIGRAM, QD
     Route: 065
     Dates: start: 20170209, end: 201704
  6. TEDUGLUTIDE [Suspect]
     Active Substance: TEDUGLUTIDE
     Dosage: 3.2 MILLIGRAM, QD
     Route: 065
     Dates: start: 201706, end: 201804
  7. TEDUGLUTIDE [Suspect]
     Active Substance: TEDUGLUTIDE
     Dosage: 3.2 MILLIGRAM, QD
     Route: 065
     Dates: start: 201706, end: 201804
  8. TEDUGLUTIDE [Suspect]
     Active Substance: TEDUGLUTIDE
     Dosage: 3.2 MILLIGRAM, QD
     Route: 065
     Dates: start: 201706, end: 201804
  9. MIRTAZAPIN [Concomitant]
     Active Substance: MIRTAZAPINE
     Dosage: 7.50 MILLIGRAM, QD
     Route: 048
     Dates: start: 2019
  10. TEDUGLUTIDE [Suspect]
     Active Substance: TEDUGLUTIDE
     Indication: SHORT-BOWEL SYNDROME
     Dosage: UNK
     Route: 065
     Dates: start: 20170209
  11. TEDUGLUTIDE [Suspect]
     Active Substance: TEDUGLUTIDE
     Dosage: 0.34 MILLILITER
     Route: 065
     Dates: start: 2018
  12. TEDUGLUTIDE [Suspect]
     Active Substance: TEDUGLUTIDE
     Dosage: 3.4 MILLILITER, QD
     Route: 065
     Dates: start: 201804
  13. TEDUGLUTIDE [Suspect]
     Active Substance: TEDUGLUTIDE
     Dosage: 2.8 MILLIGRAM, QD
     Route: 065
     Dates: start: 20170209, end: 201704
  14. TEDUGLUTIDE [Suspect]
     Active Substance: TEDUGLUTIDE
     Dosage: 2.8 MILLIGRAM, QD
     Route: 065
     Dates: start: 20170209, end: 201704
  15. TEDUGLUTIDE [Suspect]
     Active Substance: TEDUGLUTIDE
     Dosage: 3 MILLIGRAM, QD
     Route: 065
     Dates: start: 201704, end: 201706
  16. TEDUGLUTIDE [Suspect]
     Active Substance: TEDUGLUTIDE
     Dosage: 3.4 MILLIGRAM, QD
     Route: 065
     Dates: start: 201804
  17. ASPIRIN (E.C.) [Concomitant]
     Active Substance: ASPIRIN
     Indication: PRODUCT USED FOR UNKNOWN INDICATION
     Dosage: 100 MILLIGRAM, QD
  18. TEDUGLUTIDE [Suspect]
     Active Substance: TEDUGLUTIDE
     Dosage: 0.34 MILLILITER
     Route: 065
     Dates: start: 2018
  19. TEDUGLUTIDE [Suspect]
     Active Substance: TEDUGLUTIDE
     Dosage: 2.8 MILLIGRAM, QD
     Route: 065
     Dates: start: 20170209, end: 201704
  20. TEDUGLUTIDE [Suspect]
     Active Substance: TEDUGLUTIDE
     Dosage: 3.4 MILLIGRAM, QD
     Route: 065
     Dates: start: 201804
  21. LOPERAMID [Concomitant]
     Active Substance: LOPERAMIDE
     Indication: DEPRESSION
     Dosage: 1 MILLIGRAM, PRN
     Route: 065
  22. MELNEURIN [Concomitant]
     Active Substance: MELPERONE HYDROCHLORIDE
     Dosage: ORAL25 MILLIGRAM, QD
     Route: 048
     Dates: start: 2019, end: 2019
  23. TEDUGLUTIDE [Suspect]
     Active Substance: TEDUGLUTIDE
     Indication: SHORT-BOWEL SYNDROME
     Dosage: UNK
     Route: 065
     Dates: start: 20170209
  24. QUANTALAN [Concomitant]
     Active Substance: CHOLESTYRAMINE
     Indication: BLOOD CHOLESTEROL DECREASED
     Dosage: 3.6 MILLIGRAM, TWO TIMES DAY
     Route: 065
  25. TEDUGLUTIDE [Suspect]
     Active Substance: TEDUGLUTIDE
     Indication: SHORT-BOWEL SYNDROME
     Dosage: UNK
     Route: 065
     Dates: start: 20170209
  26. TEDUGLUTIDE [Suspect]
     Active Substance: TEDUGLUTIDE
     Dosage: 3.5 MILLILITER
     Route: 065
     Dates: start: 2019
  27. TEDUGLUTIDE [Suspect]
     Active Substance: TEDUGLUTIDE
     Dosage: 3.4 MILLILITER, QD
     Route: 065
     Dates: start: 201804
  28. TEDUGLUTIDE [Suspect]
     Active Substance: TEDUGLUTIDE
     Dosage: 3 MILLIGRAM, QD
     Route: 065
     Dates: start: 201704, end: 201706
  29. TEDUGLUTIDE [Suspect]
     Active Substance: TEDUGLUTIDE
     Dosage: 3 MILLIGRAM, QD
     Route: 065
     Dates: start: 201704, end: 201706
  30. TEDUGLUTIDE [Suspect]
     Active Substance: TEDUGLUTIDE
     Dosage: 3.4 MILLIGRAM, QD
     Route: 065
     Dates: start: 201804
  31. BISOPROLOL [Concomitant]
     Active Substance: BISOPROLOL
     Indication: ARRHYTHMIA
     Dosage: 2.5 MILLIGRAM, QD
     Route: 048
  32. KREON [Concomitant]
     Active Substance: PANCRELIPASE
     Indication: PANCREATIC FAILURE
     Dosage: 40 INTERNATIONAL UNIT
     Route: 065
  33. TEDUGLUTIDE [Suspect]
     Active Substance: TEDUGLUTIDE
     Dosage: 0.34 MILLILITER
     Route: 065
     Dates: start: 2018
  34. TEDUGLUTIDE [Suspect]
     Active Substance: TEDUGLUTIDE
     Dosage: 3.5 MILLILITER
     Route: 065
     Dates: start: 2019
  35. TEDUGLUTIDE [Suspect]
     Active Substance: TEDUGLUTIDE
     Dosage: 3.5 MILLILITER
     Route: 065
     Dates: start: 2020
  36. TEDUGLUTIDE [Suspect]
     Active Substance: TEDUGLUTIDE
     Dosage: 3.5 MILLILITER
     Route: 065
     Dates: start: 2020
  37. TEDUGLUTIDE [Suspect]
     Active Substance: TEDUGLUTIDE
     Dosage: 3 MILLIGRAM, QD
     Route: 065
     Dates: start: 201704, end: 201706
  38. TEDUGLUTIDE [Suspect]
     Active Substance: TEDUGLUTIDE
     Dosage: 3.4 MILLIGRAM, QD
     Route: 065
     Dates: start: 201804
  39. SIMVASTATIN. [Concomitant]
     Active Substance: SIMVASTATIN
     Indication: BLOOD CHOLESTEROL INCREASED
     Dosage: 20 MILLIGRAM, QD
     Route: 048
  40. TEDUGLUTIDE [Suspect]
     Active Substance: TEDUGLUTIDE
     Indication: SHORT-BOWEL SYNDROME
     Dosage: UNK
     Route: 065
     Dates: start: 20170209
  41. TEDUGLUTIDE [Suspect]
     Active Substance: TEDUGLUTIDE
     Dosage: 3.5 MILLILITER
     Route: 065
     Dates: start: 2019
  42. TEDUGLUTIDE [Suspect]
     Active Substance: TEDUGLUTIDE
     Dosage: 3.5 MILLILITER
     Route: 065
     Dates: start: 2020
  43. TEDUGLUTIDE [Suspect]
     Active Substance: TEDUGLUTIDE
     Dosage: 3.2 MILLIGRAM, QD
     Route: 065
     Dates: start: 201706, end: 201804
  44. MIRTAZAPIN [Concomitant]
     Active Substance: MIRTAZAPINE
     Indication: DEPRESSION
     Dosage: 15 MILLIGRAM
     Route: 065
  45. TEDUGLUTIDE [Suspect]
     Active Substance: TEDUGLUTIDE
     Dosage: 0.34 MILLILITER
     Route: 065
     Dates: start: 2018

REACTIONS (2)
  - Gastric polyps [Recovered/Resolved]
  - Large intestine polyp [Recovered/Resolved]

NARRATIVE: CASE EVENT DATE: 20190201
